FAERS Safety Report 26083111 (Version 1)
Quarter: 2025Q4

REPORT INFORMATION
  Report Type: Spontaneous
  Country: US (occurrence: None)
  Receive Date: 20251124
  Receipt Date: 20251124
  Transmission Date: 20260118
  Serious: Yes (Hospitalization)
  Sender: FDA-CTU
  Company Number: None

PATIENT
  Age: 79 Year
  Sex: Male
  Weight: 86 kg

DRUGS (1)
  1. CHLORTHALIDONE [Suspect]
     Active Substance: CHLORTHALIDONE
     Indication: Hypertension
     Dosage: 25 MG EVERY DAY PO?
     Route: 048
     Dates: start: 20240731, end: 20241023

REACTIONS (5)
  - Dizziness [None]
  - Fall [None]
  - Hyponatraemia [None]
  - Syncope [None]
  - Asthenia [None]

NARRATIVE: CASE EVENT DATE: 20241020
